FAERS Safety Report 8464234-1 (Version None)
Quarter: 2012Q2

REPORT INFORMATION
  Report Type: 
  Country: None (occurrence: None)
  Receive Date: 20120625
  Receipt Date: 20120607
  Transmission Date: 20120825
  Serious: No
  Sender: FDA-Public Use
  Company Number: US-ASTRAZENECA-2012SE29125

PATIENT
  Age: 636 Month
  Sex: Female

DRUGS (1)
  1. NEXIUM [Suspect]
     Route: 048

REACTIONS (12)
  - APHONIA [None]
  - SINUS DISORDER [None]
  - SINUSITIS [None]
  - RESPIRATORY TRACT CONGESTION [None]
  - PHARYNGEAL DISORDER [None]
  - THROAT IRRITATION [None]
  - GASTROOESOPHAGEAL REFLUX DISEASE [None]
  - EAR DISORDER [None]
  - COUGH [None]
  - DRUG DOSE OMISSION [None]
  - ACCIDENT AT WORK [None]
  - PAIN [None]
